FAERS Safety Report 6423894-7 (Version None)
Quarter: 2009Q4

REPORT INFORMATION
  Report Type: 
  Country: None (occurrence: None)
  Receive Date: 20091102
  Receipt Date: 20091019
  Transmission Date: 20100525
  Serious: Yes (Hospitalization)
  Sender: FDA-Public Use
  Company Number: PHHY2009JP32289

PATIENT
  Sex: Female
  Weight: 48 kg

DRUGS (4)
  1. DIOVAN [Suspect]
     Indication: HYPERTENSION
     Dosage: 80 MG DAILY
     Route: 048
     Dates: start: 20090721, end: 20090726
  2. CALCIUM CHANNEL BLOCKERS [Concomitant]
     Indication: HYPERTENSION
     Dosage: UNK
  3. PANALDINE [Concomitant]
     Indication: CEREBRAL INFARCTION
     Dosage: 100 MG, UNK
     Route: 048
  4. AMLODIPINE [Concomitant]
     Indication: HYPERTENSION
     Dosage: 5 MG, UNK
     Route: 048

REACTIONS (4)
  - APHONIA [None]
  - BRAIN STEM INFARCTION [None]
  - DIZZINESS [None]
  - DYSARTHRIA [None]
